FAERS Safety Report 8395633 (Version 3)
Quarter: 2012Q4

REPORT INFORMATION
  Report Type: Report from Study
  Country: JP (occurrence: JP)
  Receive Date: 20120208
  Receipt Date: 20121119
  Transmission Date: 20130627
  Serious: Yes (Death, Life-Threatening, Hospitalization)
  Sender: FDA-Public Use
  Company Number: JP-UCBSA-048288

PATIENT
  Age: 69 Year
  Sex: Male
  Weight: 61 kg

DRUGS (2)
  1. E KEPPRA [Suspect]
     Indication: PARTIAL SEIZURES WITH SECONDARY GENERALISATION
     Route: 048
     Dates: start: 20111019, end: 20111220
  2. DEPAKENE [Concomitant]
     Indication: PARTIAL SEIZURES WITH SECONDARY GENERALISATION
     Dosage: TOTAL DAILY DOSE: 800 MG
     Route: 048
     Dates: start: 20111019, end: 20111220

REACTIONS (4)
  - Shock [Fatal]
  - Hyperglycaemia [Not Recovered/Not Resolved]
  - Renal impairment [Not Recovered/Not Resolved]
  - Pyrexia [Not Recovered/Not Resolved]
